FAERS Safety Report 10698598 (Version 1)
Quarter: 2015Q1

REPORT INFORMATION
  Report Type: Report from Study
  Country: BR (occurrence: BR)
  Receive Date: 20150108
  Receipt Date: 20150108
  Transmission Date: 20150721
  Serious: Yes (Hospitalization)
  Sender: FDA-Public Use
  Company Number: BR-ABBVIE-15K-020-1329508-00

PATIENT
  Age: 59 Year
  Sex: Female
  Weight: 70 kg

DRUGS (11)
  1. RISEDRONATE SODIUM. [Concomitant]
     Active Substance: RISEDRONATE SODIUM
     Indication: MINERAL SUPPLEMENTATION
     Route: 048
     Dates: start: 201501
  2. CALCIUM CITRATE MALATE W/COLECALCIFEROL [Concomitant]
     Indication: MINERAL SUPPLEMENTATION
     Route: 048
     Dates: start: 2013
  3. ATENOLOL. [Concomitant]
     Active Substance: ATENOLOL
     Indication: CARDIAC DISORDER
     Route: 048
     Dates: start: 2014
  4. PRELONE [Concomitant]
     Active Substance: PREDNISOLONE
     Indication: ARTHRITIS
     Route: 048
     Dates: start: 2007
  5. ALGINAC [Concomitant]
     Active Substance: CYANOCOBALAMIN\DICLOFENAC SODIUM\PYRIDOXINE HYDROCHLORIDE\THIAMINE MONONITRATE
     Indication: ARTHRITIS
  6. DIGESPRID [Concomitant]
     Indication: DYSPEPSIA
     Dosage: UP TO 20 DROPS
     Route: 048
     Dates: start: 201307
  7. PANTOCAL [Concomitant]
     Indication: GASTRIC DISORDER
     Route: 048
     Dates: start: 201411
  8. ALGINAC [Concomitant]
     Active Substance: CYANOCOBALAMIN\DICLOFENAC SODIUM\PYRIDOXINE HYDROCHLORIDE\THIAMINE MONONITRATE
     Indication: PAIN
     Dosage: PYRIDOXINE HCL/CYANOCOBALAMIN/THIAMINE MONONITRATE/SODIUM DICLOFENAC (ALGINAC)
     Route: 048
  9. HUMIRA [Suspect]
     Active Substance: ADALIMUMAB
     Indication: RHEUMATOID ARTHRITIS
     Route: 058
     Dates: end: 201412
  10. ARADOIS H [Concomitant]
     Active Substance: HYDROCHLOROTHIAZIDE\LOSARTAN POTASSIUM
     Indication: BLOOD PRESSURE ABNORMAL
     Route: 048
     Dates: start: 2007
  11. DIGESPRID [Concomitant]
     Indication: PROPHYLAXIS

REACTIONS (5)
  - Inflammation [Not Recovered/Not Resolved]
  - Furuncle [Not Recovered/Not Resolved]
  - Inflammation [Recovered/Resolved]
  - Incorrect product storage [Unknown]
  - Rheumatoid arthritis [Not Recovered/Not Resolved]

NARRATIVE: CASE EVENT DATE: 201412
